FAERS Safety Report 7131169-6 (Version None)
Quarter: 2010Q4

REPORT INFORMATION
  Report Type: 
  Country: None (occurrence: None)
  Receive Date: 20101124
  Receipt Date: 20101124
  Transmission Date: 20110411
  Serious: Yes (Other)
  Sender: FDA-Public Use
  Company Number: None

PATIENT
  Age: 55 Year
  Sex: Male
  Weight: 78.0187 kg

DRUGS (1)
  1. OXYCONTIN [Suspect]
     Indication: BACK PAIN
     Dosage: 40MG  38 DAY ORAL
     Route: 048
     Dates: start: 20100928

REACTIONS (9)
  - CONDITION AGGRAVATED [None]
  - DECREASED APPETITE [None]
  - DRUG EFFECT DECREASED [None]
  - DRY EYE [None]
  - EYE IRRITATION [None]
  - FATIGUE [None]
  - HEART RATE INCREASED [None]
  - PAIN [None]
  - PRODUCT FORMULATION ISSUE [None]
